FAERS Safety Report 10185912 (Version 2)
Quarter: 2014Q2

REPORT INFORMATION
  Report Type: Report from Study
  Country: JP (occurrence: JP)
  Receive Date: 20140521
  Receipt Date: 20140521
  Transmission Date: 20141212
  Serious: Yes (Other)
  Sender: FDA-Public Use
  Company Number: JP-CELGENEUS-087-50794-13014928

PATIENT
  Age: 61 Year
  Sex: Male
  Weight: 59 kg

DRUGS (49)
  1. VIDAZA [Suspect]
     Indication: MYELODYSPLASTIC SYNDROME
     Dosage: 75 MILLIGRAM/SQ. METER
     Route: 041
     Dates: start: 20110609, end: 20110615
  2. VIDAZA [Suspect]
     Dosage: 75 MILLIGRAM/SQ. METER
     Route: 041
     Dates: start: 20110711, end: 20110715
  3. VIDAZA [Suspect]
     Dosage: 75 MILLIGRAM/SQ. METER
     Route: 041
     Dates: start: 20110815, end: 20110819
  4. VIDAZA [Suspect]
     Dosage: 75 MILLIGRAM/SQ. METER
     Route: 041
     Dates: start: 20110912, end: 20110916
  5. VIDAZA [Suspect]
     Dosage: 75 MILLIGRAM/SQ. METER
     Route: 041
     Dates: start: 20111017, end: 20111021
  6. VIDAZA [Suspect]
     Dosage: 75 MILLIGRAM/SQ. METER
     Route: 041
     Dates: start: 20111114, end: 20111118
  7. VIDAZA [Suspect]
     Dosage: 75 MILLIGRAM/SQ. METER
     Route: 041
     Dates: start: 20111212, end: 20111216
  8. VIDAZA [Suspect]
     Dosage: 75 MILLIGRAM/SQ. METER
     Route: 041
     Dates: start: 20120116, end: 20120120
  9. VIDAZA [Suspect]
     Dosage: 75 MILLIGRAM/SQ. METER
     Route: 041
     Dates: start: 20120213, end: 20120217
  10. VIDAZA [Suspect]
     Dosage: 75 MILLIGRAM/SQ. METER
     Route: 041
     Dates: start: 20120312, end: 20120316
  11. VIDAZA [Suspect]
     Dosage: 75 MILLIGRAM/SQ. METER
     Route: 041
     Dates: start: 20120409, end: 20120413
  12. VIDAZA [Suspect]
     Dosage: 75 MILLIGRAM/SQ. METER
     Route: 041
     Dates: start: 20120507, end: 20120511
  13. VIDAZA [Suspect]
     Dosage: 75 MILLIGRAM/SQ. METER
     Route: 041
     Dates: start: 20120611, end: 20120615
  14. VIDAZA [Suspect]
     Dosage: 75 MILLIGRAM/SQ. METER
     Route: 041
     Dates: start: 20120709, end: 20120713
  15. VIDAZA [Suspect]
     Dosage: 75 MILLIGRAM/SQ. METER
     Route: 041
     Dates: start: 20120813, end: 20120817
  16. VIDAZA [Suspect]
     Dosage: 75 MILLIGRAM/SQ. METER
     Route: 041
     Dates: start: 20121001, end: 20121005
  17. VIDAZA [Suspect]
     Dosage: 75 MILLIGRAM/SQ. METER
     Route: 041
     Dates: start: 20121105, end: 20121109
  18. VIDAZA [Suspect]
     Dosage: 75 MILLIGRAM/SQ. METER
     Route: 041
     Dates: start: 20121203, end: 20121207
  19. VIDAZA [Suspect]
     Dosage: 75 MILLIGRAM/SQ. METER
     Route: 041
     Dates: start: 20130107, end: 20130111
  20. GRANISETRON [Concomitant]
     Indication: PRODUCT USED FOR UNKNOWN INDICATION
     Route: 065
     Dates: start: 20110609, end: 20110615
  21. GRANISETRON [Concomitant]
     Route: 065
     Dates: start: 20110713, end: 20110715
  22. GRANISETRON [Concomitant]
     Route: 065
     Dates: start: 20110815, end: 20110819
  23. GRANISETRON [Concomitant]
     Route: 065
     Dates: start: 20110912, end: 20110916
  24. GRANISETRON [Concomitant]
     Route: 065
     Dates: start: 20111017, end: 20111021
  25. GRANISETRON [Concomitant]
     Route: 065
     Dates: start: 20111114, end: 20111118
  26. GRANISETRON [Concomitant]
     Route: 065
     Dates: start: 20111212, end: 20111216
  27. GRANISETRON [Concomitant]
     Route: 065
     Dates: start: 20120116, end: 20120120
  28. GRANISETRON [Concomitant]
     Route: 065
     Dates: start: 20120213, end: 20120217
  29. GRANISETRON [Concomitant]
     Route: 065
     Dates: start: 20120312, end: 20120316
  30. GRANISETRON [Concomitant]
     Route: 065
     Dates: start: 20120409, end: 20120413
  31. GRANISETRON [Concomitant]
     Route: 065
     Dates: start: 20120507, end: 20120511
  32. GRANISETRON [Concomitant]
     Route: 065
     Dates: start: 20120611, end: 20120615
  33. GRANISETRON [Concomitant]
     Route: 065
     Dates: start: 20120709, end: 20120713
  34. GRANISETRON [Concomitant]
     Route: 065
     Dates: start: 20120813, end: 20120817
  35. GRANISETRON [Concomitant]
     Route: 065
     Dates: start: 20121001, end: 20121005
  36. GRANISETRON [Concomitant]
     Route: 065
     Dates: start: 20121105, end: 20121109
  37. GRANISETRON [Concomitant]
     Route: 065
     Dates: start: 20121203, end: 20121207
  38. ADONA [Concomitant]
     Indication: PRODUCT USED FOR UNKNOWN INDICATION
     Route: 065
     Dates: start: 20110701, end: 20110705
  39. PRIMPERAN [Concomitant]
     Indication: PRODUCT USED FOR UNKNOWN INDICATION
     Route: 065
     Dates: start: 20110727, end: 20110802
  40. PRIMPERAN [Concomitant]
     Route: 065
     Dates: start: 20121016, end: 20121023
  41. NAUZELIN [Concomitant]
     Indication: PRODUCT USED FOR UNKNOWN INDICATION
     Route: 065
     Dates: start: 20110720
  42. BASEN OD [Concomitant]
     Indication: PRODUCT USED FOR UNKNOWN INDICATION
     Route: 065
     Dates: start: 20110908
  43. BASEN OD [Concomitant]
     Route: 065
     Dates: end: 20120115
  44. GLYCORAN [Concomitant]
     Indication: PRODUCT USED FOR UNKNOWN INDICATION
     Route: 065
     Dates: start: 20120116, end: 20120131
  45. GLYCORAN [Concomitant]
     Route: 065
     Dates: start: 20120201, end: 20120708
  46. JANUVIA [Concomitant]
     Indication: PRODUCT USED FOR UNKNOWN INDICATION
     Route: 065
     Dates: start: 20110709
  47. SELBEX [Concomitant]
     Indication: PRODUCT USED FOR UNKNOWN INDICATION
     Route: 065
     Dates: start: 20121016, end: 20121104
  48. GASTER [Concomitant]
     Indication: PRODUCT USED FOR UNKNOWN INDICATION
     Route: 065
     Dates: start: 20121016, end: 20121104
  49. MAGLAX [Concomitant]
     Indication: PRODUCT USED FOR UNKNOWN INDICATION
     Route: 065
     Dates: start: 20121227

REACTIONS (16)
  - Diabetes mellitus [Recovering/Resolving]
  - Anaemia [Not Recovered/Not Resolved]
  - Platelet count decreased [Not Recovered/Not Resolved]
  - Platelet count decreased [Recovered/Resolved]
  - Vomiting [Recovering/Resolving]
  - Nausea [Recovering/Resolving]
  - Nausea [Recovered/Resolved]
  - Platelet count decreased [Recovered/Resolved]
  - Platelet count decreased [Recovering/Resolving]
  - White blood cell count decreased [Recovered/Resolved]
  - Neutrophil count decreased [Recovered/Resolved]
  - Platelet count decreased [Recovering/Resolving]
  - Faeces soft [Recovered/Resolved]
  - Diarrhoea [Recovered/Resolved]
  - Vomiting [Recovered/Resolved]
  - Gastroenteritis [Recovered/Resolved]
